FAERS Safety Report 8469826 (Version 4)
Quarter: 2013Q4

REPORT INFORMATION
  Report Type: Report from Study
  Country: CN (occurrence: CN)
  Receive Date: 20120321
  Receipt Date: 20131106
  Transmission Date: 20140711
  Serious: Yes (Death, Hospitalization)
  Sender: FDA-Public Use
  Company Number: CN-ROCHE-801270

PATIENT
  Age: 78 Year
  Sex: Male
  Weight: 80 kg

DRUGS (36)
  1. VINORELBINE [Suspect]
     Route: 041
     Dates: start: 20110721, end: 20111221
  2. DEXAMETHASONE [Suspect]
     Indication: DIFFUSE LARGE B-CELL LYMPHOMA
     Route: 041
     Dates: start: 20110424
  3. DEXAMETHASONE [Suspect]
     Route: 041
     Dates: start: 20110517
  4. DEXAMETHASONE [Suspect]
     Route: 041
     Dates: start: 20110606
  5. DEXAMETHASONE [Suspect]
     Route: 041
     Dates: start: 20110629
  6. DEXAMETHASONE [Suspect]
     Route: 041
     Dates: start: 20110721, end: 20111225
  7. VINCRISTINE [Concomitant]
     Indication: DIFFUSE LARGE B-CELL LYMPHOMA
     Route: 065
  8. VINCRISTINE [Concomitant]
     Route: 065
  9. PREDNISONE [Concomitant]
     Indication: DIFFUSE LARGE B-CELL LYMPHOMA
     Route: 065
  10. DEXAMETHASONE [Concomitant]
     Indication: DIFFUSE LARGE B-CELL LYMPHOMA
     Route: 065
     Dates: start: 20120210, end: 20120215
  11. ADALAT [Concomitant]
     Indication: HYPERTENSION
     Route: 048
     Dates: start: 20060101
  12. ACARBOSE [Concomitant]
     Indication: DIABETES MELLITUS
     Route: 048
     Dates: start: 20050101
  13. VASOREL [Concomitant]
     Indication: CORONARY ARTERY DISEASE
     Route: 048
     Dates: start: 20060101
  14. RITUXIMAB [Suspect]
     Indication: DIFFUSE LARGE B-CELL LYMPHOMA
     Route: 041
  15. RITUXIMAB [Suspect]
     Route: 041
  16. RITUXIMAB [Suspect]
     Route: 041
  17. RITUXIMAB [Suspect]
     Route: 041
  18. RITUXIMAB [Suspect]
     Route: 041
  19. RITUXIMAB [Suspect]
     Route: 041
     Dates: start: 20110721, end: 20111220
  20. PIRARUBICIN [Suspect]
     Indication: DIFFUSE LARGE B-CELL LYMPHOMA
     Route: 041
  21. PEGYLATED LIPOSOMAL DOXORUBICIN [Suspect]
     Indication: DIFFUSE LARGE B-CELL LYMPHOMA
     Route: 041
     Dates: start: 20110425, end: 20120210
  22. PEGYLATED LIPOSOMAL DOXORUBICIN [Suspect]
     Route: 041
     Dates: start: 20110517
  23. PEGYLATED LIPOSOMAL DOXORUBICIN [Suspect]
     Route: 041
     Dates: start: 20110606
  24. PEGYLATED LIPOSOMAL DOXORUBICIN [Suspect]
     Route: 041
     Dates: start: 20110629
  25. PEGYLATED LIPOSOMAL DOXORUBICIN [Suspect]
     Route: 041
     Dates: start: 20110721, end: 20111221
  26. CYCLOPHOSPHAMIDE [Suspect]
     Indication: DIFFUSE LARGE B-CELL LYMPHOMA
     Route: 041
     Dates: start: 20120210, end: 20120210
  27. CYCLOPHOSPHAMIDE [Suspect]
     Route: 041
     Dates: start: 20110426
  28. CYCLOPHOSPHAMIDE [Suspect]
     Route: 041
     Dates: start: 20110517
  29. CYCLOPHOSPHAMIDE [Suspect]
     Route: 041
     Dates: start: 20110606
  30. CYCLOPHOSPHAMIDE [Suspect]
     Route: 041
     Dates: start: 20110629
  31. CYCLOPHOSPHAMIDE [Suspect]
     Route: 041
     Dates: start: 20110721, end: 20111221
  32. VINORELBINE [Suspect]
     Indication: DIFFUSE LARGE B-CELL LYMPHOMA
     Route: 041
     Dates: start: 20110425
  33. VINORELBINE [Suspect]
     Route: 041
     Dates: start: 20110426, end: 20120210
  34. VINORELBINE [Suspect]
     Route: 041
     Dates: start: 20110517
  35. VINORELBINE [Suspect]
     Route: 042
     Dates: start: 20110606
  36. VINORELBINE [Suspect]
     Route: 042
     Dates: start: 20110629

REACTIONS (5)
  - Multi-organ failure [Fatal]
  - Lung infection [Recovered/Resolved]
  - Upper respiratory tract infection [Recovered/Resolved]
  - Pleural effusion [Recovering/Resolving]
  - Atelectasis [Recovering/Resolving]
